FAERS Safety Report 8843714 (Version 3)
Quarter: 2012Q4

REPORT INFORMATION
  Report Type: 
  Country: US (occurrence: US)
  Receive Date: 20121016
  Receipt Date: 20121206
  Transmission Date: 20130627
  Serious: Yes (Other)
  Sender: FDA-Public Use
  Company Number: US-VERTEX PHARMACEUTICAL INC.-2012-022232

PATIENT
  Age: 46 None
  Sex: Male
  Weight: 83 kg

DRUGS (16)
  1. VX-950 (TELAPREVIR) [Suspect]
     Indication: HEPATITIS C
     Dosage: 750 mg, tid
     Route: 048
     Dates: start: 20120914
  2. RIBASPHERE [Concomitant]
     Indication: HEPATITIS C
     Dosage: 1000 mg, qd
     Route: 048
     Dates: start: 20120906
  3. PEGASYS [Concomitant]
     Indication: HEPATITIS C
     Dosage: UNK
  4. FOLIC ACID [Concomitant]
     Dosage: 1 mg, qd
     Route: 048
  5. ADVAIR [Concomitant]
     Dosage: 500-50, bid
     Route: 055
  6. NEXIUM                             /01479302/ [Concomitant]
     Dosage: 40 mg, qd
     Route: 048
  7. ALBUTEROL                          /00139501/ [Concomitant]
     Dosage: 2.5mg/0.5ml, qid
     Route: 055
  8. CAFFEINE CITRATE [Concomitant]
     Dosage: 60mc/3ml, qd
     Route: 048
  9. VITAMIN B [Concomitant]
     Dosage: UNK, qd
     Route: 048
  10. MULTIVITAMIN                       /00097801/ [Concomitant]
     Dosage: UNK, qd
     Route: 048
  11. FIORICET [Concomitant]
     Dosage: 50-325-40 mg, bid
     Route: 048
  12. ANUSOL                             /00117301/ [Concomitant]
  13. ALOE VERA [Concomitant]
  14. PRIMATENE                          /00003901/ [Concomitant]
  15. PROAIR                             /00139502/ [Concomitant]
  16. SYMBICORT [Concomitant]

REACTIONS (16)
  - Suicide attempt [Unknown]
  - Depression [Unknown]
  - Dyspnoea [Not Recovered/Not Resolved]
  - Dizziness [Not Recovered/Not Resolved]
  - Headache [Unknown]
  - Insomnia [Unknown]
  - Gastrooesophageal reflux disease [Unknown]
  - Cough [Unknown]
  - Agitation [Unknown]
  - Anger [Unknown]
  - Confusional state [Not Recovered/Not Resolved]
  - Decreased appetite [Not Recovered/Not Resolved]
  - Fatigue [Unknown]
  - Anorectal discomfort [Unknown]
  - Haemorrhoids [Unknown]
  - Rectal haemorrhage [Not Recovered/Not Resolved]
